FAERS Safety Report 11767386 (Version 2)
Quarter: 2015Q4

REPORT INFORMATION
  Report Type: Spontaneous
  Country: US (occurrence: US)
  Receive Date: 20151123
  Receipt Date: 20151127
  Transmission Date: 20160304
  Serious: No
  Sender: FDA-Public Use
  Company Number: US-PFIZER INC-2015398886

PATIENT
  Age: 38 Year
  Sex: Female

DRUGS (3)
  1. UNISOM SLEEPTABS [Suspect]
     Active Substance: DOXYLAMINE SUCCINATE
     Indication: ENERGY INCREASED
  2. ZOLOFT [Suspect]
     Active Substance: SERTRALINE HYDROCHLORIDE
     Indication: PREMENSTRUAL DYSPHORIC DISORDER
     Dosage: 50 MG, UNK
     Dates: start: 20151117
  3. UNISOM SLEEPTABS [Suspect]
     Active Substance: DOXYLAMINE SUCCINATE
     Indication: INSOMNIA
     Dosage: SOFT GEL
     Dates: start: 20151117

REACTIONS (8)
  - Feeling hot [Unknown]
  - Insomnia [Unknown]
  - Cold sweat [Unknown]
  - Feeling abnormal [Unknown]
  - Defaecation urgency [Unknown]
  - Energy increased [Unknown]
  - Palpitations [Recovered/Resolved]
  - Nausea [Unknown]

NARRATIVE: CASE EVENT DATE: 20151117
